FAERS Safety Report 5601169-3 (Version None)
Quarter: 2008Q1

REPORT INFORMATION
  Report Type: 
  Country: None (occurrence: None)
  Receive Date: 20080122
  Receipt Date: 20080122
  Transmission Date: 20080703
  Serious: Yes (Hospitalization)
  Sender: FDA-Public Use
  Company Number: None

PATIENT
  Age: 82 Year
  Sex: Male
  Weight: 76 kg

DRUGS (1)
  1. WARFARIN SODIUM [Suspect]
     Dosage: 2.5MG DAILY PO
     Route: 048

REACTIONS (3)
  - HAEMATOCHEZIA [None]
  - INTERNATIONAL NORMALISED RATIO INCREASED [None]
  - REFUSAL OF TREATMENT BY PATIENT [None]
